FAERS Safety Report 7275836-2 (Version None)
Quarter: 2011Q1

REPORT INFORMATION
  Report Type: 
  Country: None (occurrence: None)
  Receive Date: 20110204
  Receipt Date: 20110202
  Transmission Date: 20110831
  Serious: Yes (Hospitalization)
  Sender: FDA-Public Use
  Company Number: NL-ABBOTT-10P-114-0693207-00

PATIENT
  Sex: Male
  Weight: 80 kg

DRUGS (7)
  1. METHOTREXATE [Concomitant]
     Indication: PRODUCT USED FOR UNKNOWN INDICATION
     Dosage: 6 UNITS ONCE WEEKLY
  2. TETANUS VACCINE SUSPENSION FOR INJECTION 80IU/ML FLACON 0.5 ML [Concomitant]
     Indication: PRODUCT USED FOR UNKNOWN INDICATION
  3. HUMIRA [Suspect]
     Indication: RHEUMATOID ARTHRITIS
     Route: 058
     Dates: start: 20070701
  4. MELOXICAM [Concomitant]
     Indication: PRODUCT USED FOR UNKNOWN INDICATION
  5. FOLIC ACID [Concomitant]
     Indication: PRODUCT USED FOR UNKNOWN INDICATION
     Dates: start: 20070701
  6. RANITIDINE [Concomitant]
     Indication: GASTRIC DISORDER
  7. RANITIDINE [Concomitant]
     Indication: PROPHYLAXIS

REACTIONS (1)
  - THROMBOSIS [None]
